FAERS Safety Report 13976952 (Version 1)
Quarter: 2017Q3

REPORT INFORMATION
  Report Type: Spontaneous
  Country: US (occurrence: US)
  Receive Date: 20170914
  Receipt Date: 20170914
  Transmission Date: 20171128
  Serious: Yes (Other)
  Sender: FDA-Public Use
  Company Number: US-LUNDBECK-DKLU2037140

PATIENT
  Age: 16 Year
  Sex: Female

DRUGS (3)
  1. ONFI [Suspect]
     Active Substance: CLOBAZAM
     Route: 048
  2. ONFI [Suspect]
     Active Substance: CLOBAZAM
     Indication: PRODUCT USED FOR UNKNOWN INDICATION
     Route: 048
  3. ONFI [Suspect]
     Active Substance: CLOBAZAM
     Route: 048
     Dates: start: 201708

REACTIONS (3)
  - Seizure [Not Recovered/Not Resolved]
  - Pyrexia [Not Recovered/Not Resolved]
  - Spinal operation [Unknown]

NARRATIVE: CASE EVENT DATE: 201708
